FAERS Safety Report 25158311 (Version 2)
Quarter: 2025Q2

REPORT INFORMATION
  Report Type: Spontaneous
  Country: US (occurrence: US)
  Receive Date: 20250404
  Receipt Date: 20250409
  Transmission Date: 20250716
  Serious: Yes (Hospitalization)
  Sender: APOTEX
  Company Number: US-APOTEX-2025AP004262

PATIENT
  Age: 43 Year
  Sex: Male

DRUGS (5)
  1. KETOROLAC [Interacting]
     Active Substance: KETOROLAC TROMETHAMINE
     Indication: Product used for unknown indication
     Route: 042
     Dates: start: 202312, end: 202312
  2. DICYCLOMINE [Interacting]
     Active Substance: DICYCLOMINE HYDROCHLORIDE
     Indication: Product used for unknown indication
     Route: 042
  3. BACLOFEN [Concomitant]
     Active Substance: BACLOFEN
     Indication: Product used for unknown indication
     Dosage: 5 MILLIGRAM, TID
     Route: 048
  4. DICYCLOMINE [Concomitant]
     Active Substance: DICYCLOMINE HYDROCHLORIDE
     Indication: Colitis ulcerative
     Dosage: 20 MILLIGRAM, QID
     Route: 048
  5. LIDOCAINE [Concomitant]
     Active Substance: LIDOCAINE
     Indication: Product used for unknown indication
     Dosage: UNK, QD AS NEEDED
     Route: 065

REACTIONS (4)
  - Axillary vein thrombosis [Recovering/Resolving]
  - Superficial vein thrombosis [Recovering/Resolving]
  - Drug interaction [Unknown]
  - Product administration error [Unknown]

NARRATIVE: CASE EVENT DATE: 20231201
